FAERS Safety Report 6649096-7 (Version None)
Quarter: 2010Q1

REPORT INFORMATION
  Report Type: 
  Country: None (occurrence: None)
  Receive Date: 20100319
  Receipt Date: 20100308
  Transmission Date: 20100710
  Serious: Yes (Hospitalization)
  Sender: FDA-Public Use
  Company Number: B0640515A

PATIENT
  Age: 24 Month
  Sex: Male
  Weight: 7.5 kg

DRUGS (1)
  1. VENTOLIN [Suspect]
     Dates: start: 20010708

REACTIONS (11)
  - ACCIDENTAL DRUG INTAKE BY CHILD [None]
  - BLOOD GLUCOSE INCREASED [None]
  - BLOOD PRESSURE SYSTOLIC INCREASED [None]
  - HEART SOUNDS ABNORMAL [None]
  - HYPOKALAEMIA [None]
  - PROTEINURIA [None]
  - RESPIRATORY RATE INCREASED [None]
  - SUPRAVENTRICULAR TACHYCARDIA [None]
  - TACHYCARDIA [None]
  - TREMOR [None]
  - WHITE BLOOD CELL COUNT INCREASED [None]
